FAERS Safety Report 15546686 (Version 2)
Quarter: 2018Q4

REPORT INFORMATION
  Report Type: Report from Study
  Country: ES (occurrence: ES)
  Receive Date: 20181024
  Receipt Date: 20181123
  Transmission Date: 20190205
  Serious: Yes (Other)
  Sender: FDA-Public Use
  Company Number: ES-PFIZER INC-2018391345

PATIENT

DRUGS (3)
  1. BEVACIZUMAB. [Suspect]
     Active Substance: BEVACIZUMAB
     Indication: BREAST CANCER METASTATIC
     Dosage: 10 MG/KG, UNK
     Route: 042
     Dates: start: 20160201, end: 20160711
  2. PACLITAXEL. [Suspect]
     Active Substance: PACLITAXEL
     Dosage: 72 MG/M2, UNK
     Route: 042
     Dates: start: 20160620, end: 20160711
  3. PACLITAXEL. [Suspect]
     Active Substance: PACLITAXEL
     Indication: BREAST CANCER METASTATIC
     Dosage: 90 MG/M2, UNK
     Route: 042
     Dates: start: 20160201

REACTIONS (13)
  - Neurotoxicity [Not Recovered/Not Resolved]
  - Alopecia [Recovered/Resolved]
  - Visual impairment [Recovered/Resolved]
  - Respiratory tract infection [Recovered/Resolved]
  - Nasal dryness [Recovered/Resolved]
  - Headache [Recovered/Resolved]
  - Device related infection [Recovered/Resolved]
  - Epistaxis [Recovered/Resolved]
  - Myalgia [Recovered/Resolved]
  - Musculoskeletal chest pain [Not Recovered/Not Resolved]
  - Lymphoedema [Recovered/Resolved]
  - Hypertension [Not Recovered/Not Resolved]
  - Abdominal distension [Recovering/Resolving]

NARRATIVE: CASE EVENT DATE: 20160229
